FAERS Safety Report 5039997-8 (Version None)
Quarter: 2006Q2

REPORT INFORMATION
  Report Type: 
  Country: None (occurrence: None)
  Receive Date: 20060630
  Receipt Date: 20060607
  Transmission Date: 20061013
  Serious: Yes (Hospitalization, Disabling)
  Sender: FDA-Public Use
  Company Number: FR-BRISTOL-MYERS SQUIBB COMPANY-13405584

PATIENT
  Age: 66 Year
  Sex: Male

DRUGS (9)
  1. TAXOL [Suspect]
     Indication: LUNG NEOPLASM MALIGNANT
     Route: 042
     Dates: start: 20060207, end: 20060207
  2. CARBOPLATIN [Suspect]
     Indication: LUNG NEOPLASM MALIGNANT
     Route: 042
     Dates: end: 20060207
  3. ARANESP [Concomitant]
     Indication: IRON DEFICIENCY ANAEMIA
     Route: 048
     Dates: start: 20060210
  4. FUMAFER [Concomitant]
     Indication: IRON DEFICIENCY ANAEMIA
     Route: 048
     Dates: start: 20060210
  5. ASPIRIN [Concomitant]
     Indication: THROMBOSIS
     Route: 048
  6. PLAVIX [Concomitant]
     Indication: THROMBOSIS
     Route: 048
  7. NEXIUM [Concomitant]
     Indication: PROPHYLAXIS AGAINST GASTROINTESTINAL ULCER
  8. ZOPHREN [Concomitant]
     Indication: PREMEDICATION
  9. SOLUPRED [Concomitant]
     Indication: PREMEDICATION

REACTIONS (3)
  - LEG AMPUTATION [None]
  - PERIPHERAL ISCHAEMIA [None]
  - SCAR [None]
